FAERS Safety Report 6680664-2 (Version None)
Quarter: 2010Q2

REPORT INFORMATION
  Report Type: 
  Country: None (occurrence: None)
  Receive Date: 20100414
  Receipt Date: 20100402
  Transmission Date: 20101027
  Serious: Yes (Hospitalization, Other)
  Sender: FDA-Public Use
  Company Number: US-PFIZER INC-2010026953

PATIENT
  Age: 82 Year
  Sex: Female

DRUGS (1)
  1. ALDACTONE [Suspect]

REACTIONS (2)
  - BLOOD SODIUM DECREASED [None]
  - COMA [None]
